FAERS Safety Report 10884706 (Version 2)
Quarter: 2015Q1

REPORT INFORMATION
  Report Type: Spontaneous
  Country: PT (occurrence: None)
  Receive Date: 20150227
  Receipt Date: 20150311
  Transmission Date: 20150721
  Serious: Yes (Death, Life-Threatening, Hospitalization, Disabling)
  Sender: FDA-Public Use
  Company Number: FK201500813

PATIENT
  Age: 81 Year
  Sex: Male

DRUGS (8)
  1. CISATRACURIUM HOSPIRA [Suspect]
     Active Substance: CISATRACURIUM
     Indication: MUSCLE RELAXANT THERAPY
     Dosage: 8 MG, 1 IN 1 D, INTRAVENOUS (NOT OTHERWISE SPECIFIED)?
     Route: 042
     Dates: start: 20150117, end: 20150117
  2. FENTANILO LABESFAL 0.05 MG / ML (FENTANYL CITRATE) (FENTANYL CITRATE) [Suspect]
     Active Substance: FENTANYL CITRATE
     Indication: INDUCTION AND MAINTENANCE OF ANAESTHESIA
     Dosage: 0.05 MG, 1 IN 1 D, INTRAVNEOUS (NOT OTHERWISE SPECIFIED)?
     Route: 042
     Dates: start: 20150117, end: 20150117
  3. DYNASTAT [Suspect]
     Active Substance: PARECOXIB SODIUM
     Indication: PROCEDURAL PAIN
     Dosage: ?
     Route: 042
     Dates: start: 20150117, end: 20150117
  4. PRIMPERAN [Suspect]
     Active Substance: METOCLOPRAMIDE HYDROCHLORIDE
     Indication: PROPHYLAXIS OF NAUSEA AND VOMITING
     Route: 042
     Dates: start: 20150117, end: 20150117
  5. XOMOLIX [Suspect]
     Active Substance: DROPERIDOL
     Indication: PROPHYLAXIS OF NAUSEA AND VOMITING
     Route: 042
     Dates: start: 20150117, end: 20150117
  6. CEFAZOLINA LABESFAL 1 G (CEFAZOLIN SODIUM) (CEFAZOLIN SODIUM) [Suspect]
     Active Substance: CEFAZOLIN SODIUM
     Indication: INFECTION PROPHYLAXIS
     Route: 042
     Dates: start: 20150117, end: 20150117
  7. PROPOFOL. [Suspect]
     Active Substance: PROPOFOL
     Indication: INFECTION PROPHYLAXIS
     Dosage: INTRAVENOUS (NOT OTHERWISE SPECIFIED)?
     Route: 042
     Dates: start: 20150117, end: 20150117
  8. PANTOPRAZOL NORMON (PANTOPRAZOLE SODIUM SESQUIHYDRATE) (PANTOPRZOLE SODIUM [Suspect]
     Active Substance: PANTOPRAZOLE SODIUM
     Indication: PROPHYLAXIS AGAINST GASTROINTESTINAL ULCER
     Dosage: ?
     Route: 042
     Dates: start: 20150117, end: 20150117

REACTIONS (8)
  - Multi-organ failure [None]
  - Pulseless electrical activity [None]
  - Cardiac arrest [None]
  - Rash generalised [None]
  - Coma [None]
  - Rhythm idioventricular [None]
  - Cardiac failure [None]
  - Anaphylactic reaction [None]

NARRATIVE: CASE EVENT DATE: 20150117
